FAERS Safety Report 10351092 (Version 1)
Quarter: 2014Q3

REPORT INFORMATION
  Report Type: Spontaneous
  Country: US (occurrence: US)
  Receive Date: 20140730
  Receipt Date: 20140730
  Transmission Date: 20150326
  Serious: Yes (Other)
  Sender: FDA-Public Use
  Company Number: US-ASTRAZENECA-2014SE53255

PATIENT
  Age: 19 Year
  Sex: Male

DRUGS (2)
  1. SEROQUEL XR [Suspect]
     Active Substance: QUETIAPINE FUMARATE
     Indication: AFFECTIVE DISORDER
     Route: 048
  2. SEROQUEL XR [Suspect]
     Active Substance: QUETIAPINE FUMARATE
     Indication: AFFECTIVE DISORDER
     Route: 048

REACTIONS (6)
  - Drug dose omission [Unknown]
  - Intentional product misuse [Unknown]
  - White blood cell count decreased [Unknown]
  - Liver function test abnormal [Unknown]
  - Neutrophil count decreased [Unknown]
  - Blood test abnormal [Unknown]

NARRATIVE: CASE EVENT DATE: 2014
